FAERS Safety Report 4435825-X (Version None)
Quarter: 2004Q3

REPORT INFORMATION
  Report Type: 
  Country: None (occurrence: None)
  Receive Date: 20040726
  Receipt Date: 20040420
  Transmission Date: 20050211
  Serious: No
  Sender: FDA-Public Use
  Company Number: USA031253641

PATIENT
  Age: 59 Year
  Sex: Female
  Weight: 52 kg

DRUGS (8)
  1. FORTEO [Suspect]
     Indication: FRACTURE
     Dosage: 20 UG DAY
     Dates: start: 20031001
  2. FORTEO [Suspect]
     Indication: OSTEOPOROTIC FRACTURE
     Dosage: 20 UG DAY
     Dates: start: 20031001
  3. EVISTA [Concomitant]
  4. ACCUPRIL [Concomitant]
  5. SINEQUAN [Concomitant]
  6. PAXIL [Concomitant]
  7. TYLENOL W/ CODEINE [Concomitant]
  8. CALTRATE + D [Concomitant]

REACTIONS (5)
  - ALOPECIA [None]
  - HAIR GROWTH ABNORMAL [None]
  - HYPOACUSIS [None]
  - HYPOTRICHOSIS [None]
  - TINNITUS [None]
